FAERS Safety Report 23677448 (Version 1)
Quarter: 2024Q1

REPORT INFORMATION
  Report Type: Spontaneous
  Country: US (occurrence: US)
  Receive Date: 20240327
  Receipt Date: 20240327
  Transmission Date: 20240410
  Serious: No
  Sender: FDA-Public Use
  Company Number: US-PERRIGO-23US007977

PATIENT
  Sex: Female

DRUGS (1)
  1. FEXOFENADINE HYDROCHLORIDE [Suspect]
     Active Substance: FEXOFENADINE HYDROCHLORIDE
     Indication: Product used for unknown indication
     Dosage: 180 MG, SINGLE
     Route: 048
     Dates: start: 202304, end: 202304

REACTIONS (4)
  - Asthma [Unknown]
  - Cough [Unknown]
  - Wheezing [Unknown]
  - Post-tussive vomiting [Unknown]

NARRATIVE: CASE EVENT DATE: 20230401
